FAERS Safety Report 23492370 (Version 7)
Quarter: 2024Q3

REPORT INFORMATION
  Report Type: Spontaneous
  Country: US (occurrence: US)
  Receive Date: 20240207
  Receipt Date: 20240917
  Transmission Date: 20241016
  Serious: Yes (Hospitalization, Other)
  Sender: BRISTOL MYERS SQUIBB
  Company Number: US-BRISTOL-MYERS SQUIBB COMPANY-2024-015872

PATIENT
  Age: 75 Year
  Sex: Male
  Weight: 104.33 kg

DRUGS (5)
  1. REVLIMID [Suspect]
     Active Substance: LENALIDOMIDE
     Indication: Plasma cell myeloma
     Route: 048
     Dates: start: 20230628, end: 202312
  2. REVLIMID [Suspect]
     Active Substance: LENALIDOMIDE
     Dosage: TAKE 1 CAPSULE (20MG) BY MOUTH EVERY DAY FOR 14 DAYS, THEN OFF 1 WEEK. REPEAT
     Route: 048
     Dates: start: 20240129
  3. REVLIMID [Suspect]
     Active Substance: LENALIDOMIDE
     Dosage: TAKE 1 CAPSULE (15MG TOTAL) BY MOUTH EVERY DAY FOR 21 DAYS, OFF 1 WEEK, REPEAT
     Route: 048
  4. REVLIMID [Suspect]
     Active Substance: LENALIDOMIDE
     Dosage: TAKE 1 CAPSULE (20MG TOTAL) BY MOUTH EVERY DAY FOR 21 DAYS, OFF 1 WEEK
     Route: 048
  5. REVLIMID [Suspect]
     Active Substance: LENALIDOMIDE
     Dosage: TAKE 1 CAPSULE (20MG) BY MOUTH EVERY DAY FOR 14 DAYS, THEN OFF 1 WEEK. REPEAT
     Route: 048
     Dates: start: 20240129

REACTIONS (9)
  - Laboratory test abnormal [Recovered/Resolved]
  - Product supply issue [Recovered/Resolved]
  - Therapy interrupted [Unknown]
  - Off label use [Unknown]
  - Insurance issue [Unknown]
  - Pulmonary thrombosis [Not Recovered/Not Resolved]
  - Spinal stenosis [Unknown]
  - Aortic aneurysm [Unknown]
  - Product dose omission issue [Unknown]

NARRATIVE: CASE EVENT DATE: 20240620
